FAERS Safety Report 10855273 (Version 1)
Quarter: 2015Q1

REPORT INFORMATION
  Report Type: Report from Study
  Country: DE (occurrence: DE)
  Receive Date: 20150223
  Receipt Date: 20150223
  Transmission Date: 20150721
  Serious: Yes (Hospitalization)
  Sender: FDA-Public Use
  Company Number: DE-PFIZER INC-2015061485

PATIENT
  Age: 54 Year
  Sex: Female

DRUGS (7)
  1. VITAMIN B12 [Concomitant]
     Active Substance: CYANOCOBALAMIN
  2. SIMPONI [Suspect]
     Active Substance: GOLIMUMAB
     Dosage: 50 MG, EVERY 4 WEEKS
     Route: 058
     Dates: end: 201409
  3. IRON [Concomitant]
     Active Substance: IRON
  4. METHOTREXATE [Concomitant]
     Active Substance: METHOTREXATE
     Dosage: 10 MG, WEEKLY
  5. AZULFIDINE [Suspect]
     Active Substance: SULFASALAZINE
     Dosage: 1000 MG, DAILY
     Dates: end: 2014
  6. DECORTIN [Concomitant]
     Active Substance: PREDNISONE
  7. NAPROXEN. [Concomitant]
     Active Substance: NAPROXEN

REACTIONS (2)
  - Gastric disorder [Recovered/Resolved]
  - Nausea [Recovered/Resolved]

NARRATIVE: CASE EVENT DATE: 20140709
